FAERS Safety Report 7506185 (Version 4)
Quarter: 2014Q1

REPORT INFORMATION
  Report Type: Spontaneous
  Country: US (occurrence: US)
  Receive Date: 20100728
  Receipt Date: 20140127
  Transmission Date: 20141002
  Serious: Yes (Other)
  Sender: FDA-Public Use
  Company Number: US-BAYER-201029001NA

PATIENT
  Age: 44 Year
  Sex: Female
  Weight: 79.37 kg

DRUGS (5)
  1. YAZ [Suspect]
     Indication: MENSTRUAL CYCLE MANAGEMENT
     Dosage: UNK UNK, UNK
     Route: 048
     Dates: start: 2006, end: 20100402
  2. YAZ [Suspect]
     Indication: ORAL CONTRACEPTION
  3. NEXIUM [Concomitant]
  4. ATACAND [CANDESARTAN CILEXETIL] [Concomitant]
  5. ADVIL [IBUPROFEN] [Concomitant]

REACTIONS (7)
  - Cholelithiasis [None]
  - Cholecystitis chronic [None]
  - Abdominal pain upper [None]
  - Gastrointestinal disorder [None]
  - Back pain [None]
  - Abdominal pain lower [None]
  - Abdominal pain [None]
